FAERS Safety Report 11856414 (Version 1)
Quarter: 2015Q4

REPORT INFORMATION
  Report Type: Report from Study
  Country: US (occurrence: US)
  Receive Date: 20151221
  Receipt Date: 20151221
  Transmission Date: 20160305
  Serious: Yes (Death, Other)
  Sender: FDA-Public Use
  Company Number: US-REGENERON PHARMACEUTICALS, INC.-2015-14892

PATIENT

DRUGS (8)
  1. CARVEDILOL. [Concomitant]
     Active Substance: CARVEDILOL
     Dosage: 6.25 MG MILLIGRAM(S), UNK
  2. JANUVIA [Concomitant]
     Active Substance: SITAGLIPTIN PHOSPHATE
     Dosage: 50 MG MILLIGRAM(S), UNK
  3. EYLEA [Suspect]
     Active Substance: AFLIBERCEPT
     Indication: PRODUCT USED FOR UNKNOWN INDICATION
     Dosage: 2 MG, MONTHLY
     Route: 031
     Dates: start: 201510, end: 201512
  4. ISOSORB DINIT [Concomitant]
     Dosage: 20 MG MILLIGRAM(S), UNK
  5. FUROSEMIDE. [Concomitant]
     Active Substance: FUROSEMIDE
     Dosage: 40 MG MILLIGRAM(S), UNK
  6. OZURDEX [Concomitant]
     Active Substance: DEXAMETHASONE
     Dosage: 0.7 MG MILLIGRAM(S), UNK
  7. GLIMEPIRIDE. [Concomitant]
     Active Substance: GLIMEPIRIDE
  8. WARFARIN [Concomitant]
     Active Substance: WARFARIN
     Dosage: 5 MG MILLIGRAM(S), UNK

REACTIONS (1)
  - Death [Fatal]
